FAERS Safety Report 14897207 (Version 1)
Quarter: 2018Q2

REPORT INFORMATION
  Report Type: Spontaneous
  Country: AU (occurrence: AU)
  Receive Date: 20180515
  Receipt Date: 20180515
  Transmission Date: 20180711
  Serious: Yes (Death, Life-Threatening, Hospitalization, Other)
  Sender: FDA-Public Use
  Company Number: AU-GILEAD-2018-0334686

PATIENT
  Age: 85 Year
  Sex: Female
  Weight: 56 kg

DRUGS (8)
  1. EPCLUSA [Suspect]
     Active Substance: SOFOSBUVIR\VELPATASVIR
     Indication: HEPATITIS C
     Route: 065
  2. BISOPROLOL [Concomitant]
     Active Substance: BISOPROLOL
     Dosage: 2.5 MG, UNK
     Route: 048
     Dates: start: 201803
  3. MAGNESIUM [Concomitant]
     Active Substance: MAGNESIUM
     Route: 048
  4. SLOW K [Concomitant]
     Active Substance: POTASSIUM CHLORIDE
     Route: 048
  5. PANTOPRAZOLE [Concomitant]
     Active Substance: PANTOPRAZOLE
     Dosage: 40 MG, UNK
     Route: 048
  6. COLOXYL WITH SENNA [Concomitant]
     Active Substance: DOCUSATE\SENNOSIDES
     Route: 048
  7. LASIX [Concomitant]
     Active Substance: FUROSEMIDE
     Dosage: 20 MG, UNK
     Route: 048
     Dates: start: 2016
  8. CALTRATE D                         /00944201/ [Concomitant]
     Route: 048

REACTIONS (9)
  - Atrial fibrillation [Fatal]
  - Anaemia [Fatal]
  - Sepsis [Fatal]
  - Thrombocytopenia [Fatal]
  - Multiple organ dysfunction syndrome [Fatal]
  - Subarachnoid haemorrhage [Fatal]
  - Asthma [Fatal]
  - Neutropenia [Fatal]
  - Cholecystitis acute [Fatal]

NARRATIVE: CASE EVENT DATE: 20180416
